FAERS Safety Report 9641074 (Version 2)
Quarter: 2013Q4

REPORT INFORMATION
  Report Type: Report from Study
  Country: US (occurrence: US)
  Receive Date: 20131023
  Receipt Date: 20131023
  Transmission Date: 20140711
  Serious: No
  Sender: FDA-Public Use
  Company Number: US-ABBVIE-13P-163-1045845-00

PATIENT
  Age: 54 Year
  Sex: Female
  Weight: 88.53 kg

DRUGS (2)
  1. LUPRON DEPOT [Suspect]
     Indication: ENDOMETRIOSIS
     Route: 030
     Dates: start: 20130102, end: 201303
  2. METOPROLOL [Concomitant]
     Indication: HYPERTENSION

REACTIONS (18)
  - Adnexa uteri pain [Recovered/Resolved]
  - Adnexa uteri pain [Not Recovered/Not Resolved]
  - Uterine pain [Unknown]
  - Pain [Unknown]
  - Hot flush [Not Recovered/Not Resolved]
  - Myalgia [Not Recovered/Not Resolved]
  - Migraine [Recovering/Resolving]
  - Flushing [Unknown]
  - Weight increased [Not Recovered/Not Resolved]
  - Headache [Not Recovered/Not Resolved]
  - Arthralgia [Recovering/Resolving]
  - Pain [Not Recovered/Not Resolved]
  - Middle insomnia [Not Recovered/Not Resolved]
  - Pelvic pain [Not Recovered/Not Resolved]
  - Abdominal discomfort [Not Recovered/Not Resolved]
  - Gastrointestinal pain [Not Recovered/Not Resolved]
  - Blood pressure increased [Unknown]
  - Hypersensitivity [Unknown]
